FAERS Safety Report 13327114 (Version 3)
Quarter: 2017Q1

REPORT INFORMATION
  Report Type: Report from Study
  Country: IT (occurrence: IT)
  Receive Date: 20170313
  Receipt Date: 20170331
  Transmission Date: 20170428
  Serious: Yes (Hospitalization)
  Sender: FDA-Public Use
  Company Number: IT-ROCHE-1904494

PATIENT
  Age: 61 Year

DRUGS (5)
  1. ERLOTINIB [Suspect]
     Active Substance: ERLOTINIB
     Indication: NON-SMALL CELL LUNG CANCER
     Dosage: DATE OF MOST RECENT DOSE PRIOR TO EVENT: 06/MAR/2017 (DOSE: 100 MG)
     Route: 065
     Dates: start: 20161128
  2. PRAZEPAM [Concomitant]
     Active Substance: PRAZEPAM
     Dosage: 0.5 CPR ONCE DAILY
     Route: 065
  3. METRONIDAZOLE. [Concomitant]
     Active Substance: METRONIDAZOLE
     Dosage: 1 APPLICATION DAILY ON FACE
     Route: 065
  4. LORMETAZEPAM [Concomitant]
     Active Substance: LORMETAZEPAM
     Dosage: DOSE: 2.5 MG/ML, 7-8 GTT (0.8 MG) ONCE DAILY
     Route: 065
  5. BEVACIZUMAB [Suspect]
     Active Substance: BEVACIZUMAB
     Indication: NON-SMALL CELL LUNG CANCER
     Dosage: DATE OF MOST RECENT DOSE PRIOR TO EVENT: 02/MAR/2017 (DOSE: 825 MG)
     Route: 065
     Dates: start: 20161128

REACTIONS (2)
  - Diverticulitis [Not Recovered/Not Resolved]
  - Abdominal distension [Not Recovered/Not Resolved]

NARRATIVE: CASE EVENT DATE: 20170306
